FAERS Safety Report 5429203-4 (Version None)
Quarter: 2007Q3

REPORT INFORMATION
  Report Type: 
  Country: None (occurrence: None)
  Receive Date: 20070829
  Receipt Date: 20070822
  Transmission Date: 20080115
  Serious: Yes (Other)
  Sender: FDA-Public Use
  Company Number: US-GENENTECH-224123

PATIENT
  Age: 15 Year
  Sex: Male
  Weight: 40.4 kg

DRUGS (8)
  1. NUTROPIN AQ [Suspect]
     Indication: GROWTH HORMONE DEFICIENCY
     Dosage: 0.29 MG/KG, 1/WEEK
     Route: 058
     Dates: start: 20050102, end: 20060126
  2. NUTROPIN AQ [Suspect]
     Dosage: 0.32 MG/KG, 1/WEEK
     Route: 058
  3. LEVOXINE [Concomitant]
     Indication: DRUG USE FOR UNKNOWN INDICATION
  4. CLONIDINE [Concomitant]
     Indication: DRUG USE FOR UNKNOWN INDICATION
  5. BUSPAR [Concomitant]
     Indication: DRUG USE FOR UNKNOWN INDICATION
  6. SEROQUEL [Concomitant]
     Indication: DRUG USE FOR UNKNOWN INDICATION
     Dosage: 600 MG, UNK
  7. SEROQUEL [Concomitant]
     Dosage: 800 MG, UNK
     Dates: end: 20060108
  8. FLUVOXAMINE MALEATE [Concomitant]
     Indication: DRUG USE FOR UNKNOWN INDICATION

REACTIONS (1)
  - TYPE 1 DIABETES MELLITUS [None]
